FAERS Safety Report 24424970 (Version 2)
Quarter: 2024Q4

REPORT INFORMATION
  Report Type: Spontaneous
  Country: KR (occurrence: KR)
  Receive Date: 20241010
  Receipt Date: 20241022
  Transmission Date: 20250115
  Serious: No
  Sender: Harrow Health
  Company Number: KR-IMP-2024000825

PATIENT
  Age: 40 Year
  Sex: Male

DRUGS (9)
  1. VIGAMOX [Suspect]
     Active Substance: MOXIFLOXACIN HYDROCHLORIDE
     Indication: Infective keratitis
     Dosage: 0,5 %, 50 MG/ML, Q2H
     Route: 047
  2. AMIKACIN [Suspect]
     Active Substance: AMIKACIN
     Indication: Infective keratitis
     Dosage: 2 %, 20 MG/ML,Q2H
     Route: 065
  3. AMIKACIN [Suspect]
     Active Substance: AMIKACIN
     Indication: Infective keratitis
     Route: 042
  4. ATROPINE [Suspect]
     Active Substance: ATROPINE
     Indication: Infective keratitis
     Dosage: 1%, BID
     Route: 065
  5. CEFTAZIDIME [Suspect]
     Active Substance: CEFTAZIDIME
     Indication: Infective keratitis
     Dosage: 5%, 50 MG/ML,Q2H
     Route: 065
  6. MOXIFLOXACIN [Suspect]
     Active Substance: MOXIFLOXACIN
     Indication: Infective keratitis
     Route: 042
  7. OFLOXACIN [Suspect]
     Active Substance: OFLOXACIN
     Indication: Infective keratitis
     Dosage: 3%,QHS
     Route: 065
  8. VANCOMYCIN [Suspect]
     Active Substance: VANCOMYCIN
     Indication: Infective keratitis
     Dosage: 5% 50 MILLIGRAM PER MILLILITRE, Q2H
     Route: 065
  9. VANCOMYCIN [Suspect]
     Active Substance: VANCOMYCIN
     Indication: Infective keratitis
     Route: 042

REACTIONS (1)
  - Therapy non-responder [Unknown]
